FAERS Safety Report 15402718 (Version 2)
Quarter: 2019Q3

REPORT INFORMATION
  Report Type: Spontaneous
  Country: US (occurrence: US)
  Receive Date: 20180919
  Receipt Date: 20190806
  Transmission Date: 20191004
  Serious: Yes (Hospitalization, Other)
  Sender: FDA-Public Use
  Company Number: US-JNJFOC-20180919114

PATIENT
  Age: 60 Year
  Sex: Female

DRUGS (2)
  1. INVOKANA [Suspect]
     Active Substance: CANAGLIFLOZIN
     Indication: DIABETES MELLITUS
     Route: 048
     Dates: start: 201411, end: 201510
  2. INVOKANA [Suspect]
     Active Substance: CANAGLIFLOZIN
     Route: 048
     Dates: end: 2017

REACTIONS (10)
  - Osteomyelitis [Not Recovered/Not Resolved]
  - Cerebrovascular accident [Unknown]
  - Diabetic ketoacidosis [Unknown]
  - Bone operation [Unknown]
  - Neuropathic arthropathy [Unknown]
  - Myocardial infarction [Unknown]
  - Renal injury [Unknown]
  - Treatment noncompliance [Unknown]
  - Toe amputation [Unknown]
  - Gangrene [Unknown]

NARRATIVE: CASE EVENT DATE: 20140129
